FAERS Safety Report 11276912 (Version 4)
Quarter: 2015Q4

REPORT INFORMATION
  Report Type: Report from Study
  Country: CL (occurrence: CL)
  Receive Date: 20150716
  Receipt Date: 20151014
  Transmission Date: 20160304
  Serious: Yes (Hospitalization)
  Sender: FDA-Public Use
  Company Number: PHHY2015CL085585

PATIENT
  Sex: Female

DRUGS (3)
  1. CLOZARIL [Suspect]
     Active Substance: CLOZAPINE
     Indication: PRODUCT USED FOR UNKNOWN INDICATION
     Dosage: 50 MG, QD
     Route: 048
     Dates: start: 199805
  2. TRADOX [Concomitant]
     Indication: EPILEPSY
     Dosage: UNK, QD
     Route: 065
     Dates: start: 1998
  3. ATEMPERATOR                             /CHL/ [Concomitant]
     Indication: EPILEPSY
     Dosage: UNK, QD
     Route: 065
     Dates: start: 1998

REACTIONS (10)
  - Head injury [Recovered/Resolved]
  - Loss of consciousness [Recovered/Resolved]
  - Post-traumatic headache [Recovered/Resolved]
  - Vomiting [Recovered/Resolved]
  - Fall [Recovered/Resolved]
  - Malaise [Recovered/Resolved]
  - Influenza [Recovered/Resolved]
  - Gastroenteritis [Recovered/Resolved]
  - Epilepsy [Recovered/Resolved]
  - Incontinence [Recovered/Resolved]
